FAERS Safety Report 5090977-6 (Version None)
Quarter: 2006Q3

REPORT INFORMATION
  Report Type: 
  Country: None (occurrence: None)
  Receive Date: 20060727
  Receipt Date: 20060515
  Transmission Date: 20061208
  Serious: Yes (Other)
  Sender: FDA-Public Use
  Company Number: 2006059333

PATIENT
  Age: 84 Year
  Sex: Female
  Weight: 48.0813 kg

DRUGS (8)
  1. LYRICA [Suspect]
     Indication: HERPES ZOSTER
     Dosage: 50 MG (50 MG, 1 IN 1 D),
     Dates: start: 20060401
  2. METOPROLOL (METOPROLOL) [Concomitant]
  3. NORVASC [Concomitant]
  4. OGEN [Concomitant]
  5. ASPIRIN [Concomitant]
  6. LEVOTHYROXINE SODIUM [Concomitant]
  7. ACETAMINOPHEN [Concomitant]
  8. VICODIN [Concomitant]

REACTIONS (2)
  - CONDITION AGGRAVATED [None]
  - PAIN [None]
